FAERS Safety Report 9360658 (Version 1)
Quarter: 2013Q2

REPORT INFORMATION
  Report Type: Spontaneous
  Country: FR (occurrence: FR)
  Receive Date: 20130621
  Receipt Date: 20130621
  Transmission Date: 20140414
  Serious: Yes (Hospitalization)
  Sender: FDA-Public Use
  Company Number: FR-ROCHE-1237532

PATIENT
  Age: 73 Year
  Sex: Female

DRUGS (3)
  1. ROCEPHINE [Suspect]
     Indication: LUNG DISORDER
     Route: 065
     Dates: start: 20130221, end: 20130228
  2. PREVISCAN (FRANCE) [Suspect]
     Indication: LUNG DISORDER
     Route: 048
     Dates: end: 20130225
  3. ROVAMYCINE [Suspect]
     Indication: LUNG DISORDER
     Route: 048
     Dates: start: 20130221, end: 20130228

REACTIONS (2)
  - Abdominal wall haematoma [Recovered/Resolved]
  - International normalised ratio increased [Recovered/Resolved]
